FAERS Safety Report 19411199 (Version 3)
Quarter: 2021Q3

REPORT INFORMATION
  Report Type: Spontaneous
  Country: EG (occurrence: EG)
  Receive Date: 20210614
  Receipt Date: 20210701
  Transmission Date: 20211014
  Serious: Yes (Life-Threatening, Congenital Anomaly, Other)
  Sender: FDA-Public Use
  Company Number: EG-NOVOPROD-820002

PATIENT
  Age: 214 Month
  Sex: Female
  Weight: 65 kg

DRUGS (5)
  1. NOVORAPID [Suspect]
     Active Substance: INSULIN ASPART
     Indication: TYPE 1 DIABETES MELLITUS
     Dosage: 60 IU, QD (20IU +25IU +15 IU)
     Route: 065
     Dates: start: 2013
  2. SYMBICORT [Concomitant]
     Active Substance: BUDESONIDE\FORMOTEROL FUMARATE DIHYDRATE
     Dosage: UNK (DOSE 3 TIMES A DAY AND SOMETIMES ONLY ONCE IN THE EVENING)
     Route: 065
  3. TRESIBA [Suspect]
     Active Substance: INSULIN DEGLUDEC
     Indication: TYPE 1 DIABETES MELLITUS
     Dosage: 45 IU, QD
     Route: 065
  4. NOVORAPID [Suspect]
     Active Substance: INSULIN ASPART
     Dosage: UNK (OVERDOSE)
     Route: 065
  5. NASONEX [Concomitant]
     Active Substance: MOMETASONE FUROATE
     Dosage: UNK(DOSE 3 TIMES A DAY AND SOMETIMES ONLY ONCE IN THE EVENING)
     Route: 065

REACTIONS (4)
  - Condition aggravated [Not Recovered/Not Resolved]
  - Hypoglycaemic coma [Recovered/Resolved]
  - Optic atrophy [Not Recovered/Not Resolved]
  - Overdose [Unknown]

NARRATIVE: CASE EVENT DATE: 2015
